FAERS Safety Report 4739445-9 (Version None)
Quarter: 2005Q3

REPORT INFORMATION
  Report Type: 
  Country: None (occurrence: None)
  Receive Date: 20050810
  Receipt Date: 20050131
  Transmission Date: 20060218
  Serious: No
  Sender: FDA-Public Use
  Company Number: US-GLAXOSMITHKLINE-A0543057A

PATIENT
  Age: 67 Year
  Sex: Male

DRUGS (10)
  1. PAXIL [Suspect]
     Indication: DEPRESSION
     Dosage: 20MG PER DAY
     Route: 048
  2. COREG [Concomitant]
  3. LIPITOR [Concomitant]
  4. COZAAR [Concomitant]
     Route: 065
  5. UNKNOWN MEDICATION [Concomitant]
     Route: 065
  6. LASIX [Concomitant]
  7. FLOMAX [Concomitant]
  8. POTASSIUM CHLORIDE [Concomitant]
  9. AMBIEN [Concomitant]
  10. LOTREL [Concomitant]

REACTIONS (2)
  - DIZZINESS [None]
  - TREMOR [None]
